FAERS Safety Report 8266244-6 (Version None)
Quarter: 2012Q2

REPORT INFORMATION
  Report Type: 
  Country: None (occurrence: None)
  Receive Date: 20120406
  Receipt Date: 20120330
  Transmission Date: 20120825
  Serious: Yes (Death)
  Sender: FDA-Public Use
  Company Number: US-ROXANE LABORATORIES, INC.-2012-RO-00952RO

PATIENT

DRUGS (7)
  1. METHADONE HCL [Suspect]
  2. ZOLPIDEM [Suspect]
  3. DIPHENHYDRAMINE HCL [Suspect]
  4. LORAZEPAM [Suspect]
  5. METHOCARBAMOL [Suspect]
  6. OXYCODONE AND ACETAMINOPHEN [Suspect]
  7. CLONAZEPAM [Suspect]

REACTIONS (1)
  - PULMONARY OEDEMA [None]
